FAERS Safety Report 7352550-6 (Version None)
Quarter: 2011Q1

REPORT INFORMATION
  Report Type: 
  Country: None (occurrence: None)
  Receive Date: 20110308
  Receipt Date: 20110308
  Transmission Date: 20110831
  Serious: Yes (Life-Threatening, Hospitalization, Other)
  Sender: FDA-Public Use
  Company Number: None

PATIENT
  Age: 17 Year
  Sex: Female
  Weight: 58.9676 kg

DRUGS (1)
  1. BEYAZ [Suspect]
     Indication: CONTRACEPTION
     Dosage: 1 1@DAY PO
     Route: 048
     Dates: start: 20110110, end: 20110124

REACTIONS (3)
  - FALL [None]
  - CORONARY ARTERY THROMBOSIS [None]
  - PULMONARY EMBOLISM [None]
